FAERS Safety Report 5729197-8 (Version None)
Quarter: 2008Q2

REPORT INFORMATION
  Report Type: 
  Country: None (occurrence: None)
  Receive Date: 20080430
  Receipt Date: 20071206
  Transmission Date: 20081010
  Serious: No
  Sender: FDA-Public Use
  Company Number: 2007PV033812

PATIENT
  Age: 65 Year
  Sex: Male
  Weight: 120.6568 kg

DRUGS (5)
  1. SYMLIN [Suspect]
     Indication: DIABETES MELLITUS
     Dosage: 30 MCG;TID;SC
     Route: 058
     Dates: start: 20071101
  2. SYMLIN [Suspect]
  3. SYMLIN [Suspect]
  4. HUMALOG [Concomitant]
  5. HUMULIN R [Concomitant]

REACTIONS (1)
  - NAUSEA [None]
